FAERS Safety Report 12802667 (Version 1)
Quarter: 2016Q4

REPORT INFORMATION
  Report Type: Spontaneous
  Country: SE (occurrence: SE)
  Receive Date: 20161003
  Receipt Date: 20161003
  Transmission Date: 20170207
  Serious: Yes (Hospitalization, Other)
  Sender: FDA-Public Use
  Company Number: SE-SA-2016SA176550

PATIENT
  Age: 84 Year
  Sex: Female

DRUGS (5)
  1. INSUMAN COMB 25 [Concomitant]
  2. INSUMAN RAPID [Concomitant]
     Active Substance: INSULIN HUMAN
  3. LYXUMIA [Suspect]
     Active Substance: LIXISENATIDE
     Indication: DIABETES MELLITUS
     Route: 058
     Dates: start: 20151211, end: 20160830
  4. HYDROCHLOROTHIAZIDE/LOSARTAN [Concomitant]
  5. LYXUMIA [Suspect]
     Active Substance: LIXISENATIDE
     Indication: DIABETES MELLITUS
     Route: 065

REACTIONS (5)
  - Weight decreased [Not Recovered/Not Resolved]
  - Oesophagitis [Not Recovered/Not Resolved]
  - Nausea [Not Recovered/Not Resolved]
  - Hypoglycaemia [Not Recovered/Not Resolved]
  - Duodenitis [Not Recovered/Not Resolved]

NARRATIVE: CASE EVENT DATE: 2016
